FAERS Safety Report 17945060 (Version 1)
Quarter: 2020Q2

REPORT INFORMATION
  Report Type: Spontaneous
  Country: IT (occurrence: IT)
  Receive Date: 20200626
  Receipt Date: 20200626
  Transmission Date: 20200714
  Serious: Yes (Hospitalization, Other)
  Sender: FDA-Public Use
  Company Number: IT-AUROBINDO-AUR-APL-2020-030270

PATIENT
  Age: 44 Year
  Sex: Female

DRUGS (4)
  1. AZITHROMYCIN ANHYDROUS. [Suspect]
     Active Substance: AZITHROMYCIN ANHYDROUS
     Dosage: UNK
     Route: 065
  2. OXYGEN. [Suspect]
     Active Substance: OXYGEN
     Indication: COVID-19 PNEUMONIA
     Dosage: UNK
     Route: 055
  3. HYDROXYCHLOROQUINE [Suspect]
     Active Substance: HYDROXYCHLOROQUINE
     Indication: COVID-19 PNEUMONIA
     Dosage: UNK
     Route: 065
  4. AZITHROMYCIN ANHYDROUS. [Suspect]
     Active Substance: AZITHROMYCIN ANHYDROUS
     Indication: COVID-19 PNEUMONIA
     Dosage: UNK
     Route: 065

REACTIONS (12)
  - Vena cava thrombosis [Unknown]
  - Pulmonary artery thrombosis [Unknown]
  - Headache [Unknown]
  - Product use in unapproved indication [Unknown]
  - Disseminated intravascular coagulation [Unknown]
  - Aphasia [Unknown]
  - Off label use [Unknown]
  - Mental disorder [Unknown]
  - Hemiparesis [Unknown]
  - Cerebral venous thrombosis [Unknown]
  - Dyspnoea [Unknown]
  - Drug interaction [Unknown]
